FAERS Safety Report 13694116 (Version 1)
Quarter: 2017Q2

REPORT INFORMATION
  Report Type: Spontaneous
  Country: US (occurrence: US)
  Receive Date: 20170627
  Receipt Date: 20170627
  Transmission Date: 20170830
  Serious: No
  Sender: FDA-Public Use
  Company Number: US-MYLANLABS-2016M1056038

PATIENT
  Sex: Female

DRUGS (1)
  1. OMEPRAZOLE DELAYED-RELEASE CAPSULES, USP [Suspect]
     Active Substance: OMEPRAZOLE
     Indication: GASTROOESOPHAGEAL REFLUX DISEASE
     Dosage: UNK
     Dates: start: 201612, end: 201612

REACTIONS (3)
  - Ear discomfort [Not Recovered/Not Resolved]
  - Drug ineffective [Not Recovered/Not Resolved]
  - Reaction to drug excipients [Not Recovered/Not Resolved]
